FAERS Safety Report 4343026-9 (Version None)
Quarter: 2004Q2

REPORT INFORMATION
  Report Type: 
  Country: None (occurrence: None)
  Receive Date: 20040416
  Receipt Date: 20040405
  Transmission Date: 20050107
  Serious: Yes (Hospitalization)
  Sender: FDA-Public Use
  Company Number: US-JNJFOC-20040400803

PATIENT
  Age: 81 Year
  Sex: Female
  Weight: 61.2356 kg

DRUGS (11)
  1. INFLIXIMAB (INFLIXIMAB, RECOMBINANT) LYOPHILIZED POWDER [Suspect]
     Indication: RHEUMATOID ARTHRITIS
     Dosage: INTRAVENOUS
     Route: 042
     Dates: start: 20000711
  2. PREDNISONE [Concomitant]
  3. METHOTREXATE [Concomitant]
  4. PRILOSEC [Concomitant]
  5. COREG [Concomitant]
  6. VASOTEC [Concomitant]
  7. LANOXIN [Concomitant]
  8. LIPITOR [Concomitant]
  9. FUROSEMIDE [Concomitant]
  10. CENTRUM (CENTRUM) [Concomitant]
  11. TYLENOL [Concomitant]

REACTIONS (5)
  - CAROTID ARTERY DISEASE [None]
  - CONDUCTION DISORDER [None]
  - NAUSEA [None]
  - SYNCOPE [None]
  - WHITE BLOOD CELL COUNT INCREASED [None]
